FAERS Safety Report 25262893 (Version 1)
Quarter: 2025Q2

REPORT INFORMATION
  Report Type: Spontaneous
  Country: US (occurrence: US)
  Receive Date: 20250502
  Receipt Date: 20250502
  Transmission Date: 20250717
  Serious: Yes (Other)
  Sender: CSL BEHRING
  Company Number: US-BEH-2025203169

PATIENT
  Age: 63 Year
  Sex: Female

DRUGS (29)
  1. HIZENTRA [Suspect]
     Active Substance: HUMAN IMMUNOGLOBULIN G
     Indication: Immunodeficiency common variable
     Route: 058
     Dates: start: 20220819
  2. ABILIFY [Concomitant]
     Active Substance: ARIPIPRAZOLE
  3. AMITRIPTYLINE [Concomitant]
     Active Substance: AMITRIPTYLINE
  4. ATACAND [Concomitant]
     Active Substance: CANDESARTAN CILEXETIL
  5. ATENOLOL [Concomitant]
     Active Substance: ATENOLOL
  6. BACLOFEN [Concomitant]
     Active Substance: BACLOFEN
  7. ASPIRIN [Concomitant]
     Active Substance: ASPIRIN
  8. BENADRYL [Concomitant]
     Active Substance: DIPHENHYDRAMINE HYDROCHLORIDE
  9. CONCERTA [Concomitant]
     Active Substance: METHYLPHENIDATE HYDROCHLORIDE
  10. CREON [Concomitant]
     Active Substance: PANCRELIPASE AMYLASE\PANCRELIPASE LIPASE\PANCRELIPASE PROTEASE
  11. EPINEPHRINE [Concomitant]
     Active Substance: EPINEPHRINE
  12. ESTRADIOL [Concomitant]
     Active Substance: ESTRADIOL
  13. FLONASE [Concomitant]
     Active Substance: FLUTICASONE PROPIONATE
  14. FROVA [Concomitant]
     Active Substance: FROVATRIPTAN SUCCINATE
  15. LASIX [Concomitant]
     Active Substance: FUROSEMIDE
  16. LEXAPRO [Concomitant]
     Active Substance: ESCITALOPRAM OXALATE
  17. LIDOCAINE\PRILOCAINE [Concomitant]
     Active Substance: LIDOCAINE\PRILOCAINE
  18. MUCINEX [Concomitant]
     Active Substance: GUAIFENESIN
  19. PATANOL [Concomitant]
     Active Substance: OLOPATADINE HYDROCHLORIDE
  20. PEPCID [Concomitant]
     Active Substance: FAMOTIDINE
  21. POTASSIUM CHLORIDE [Concomitant]
     Active Substance: POTASSIUM CHLORIDE
  22. PROBIOTICS NOS [Concomitant]
     Active Substance: PROBIOTICS NOS
  23. PROMETRIUM [Concomitant]
     Active Substance: PROGESTERONE
  24. SYNTHROID [Concomitant]
     Active Substance: LEVOTHYROXINE SODIUM
  25. TUMS [Concomitant]
     Active Substance: CALCIUM CARBONATE
  26. TYLENOL [Concomitant]
     Active Substance: ACETAMINOPHEN
  27. XANAX [Concomitant]
     Active Substance: ALPRAZOLAM
  28. XIFAXAN [Concomitant]
     Active Substance: RIFAXIMIN
  29. ZYRTEC [Concomitant]
     Active Substance: CETIRIZINE HYDROCHLORIDE

REACTIONS (2)
  - Drug ineffective [Recovered/Resolved]
  - Infusion site pruritus [Recovered/Resolved]

NARRATIVE: CASE EVENT DATE: 20250301
